FAERS Safety Report 8404939-1 (Version None)
Quarter: 2012Q2

REPORT INFORMATION
  Report Type: 
  Country: None (occurrence: None)
  Receive Date: 20120601
  Receipt Date: 20120521
  Transmission Date: 20120825
  Serious: No
  Sender: FDA-Public Use
  Company Number: US-ASTRAZENECA-2012SE32621

PATIENT
  Age: 77 Year
  Sex: Female
  Weight: 58.1 kg

DRUGS (8)
  1. CRESTOR [Suspect]
     Indication: BLOOD CHOLESTEROL INCREASED
     Route: 048
  2. SCALPICIN [Concomitant]
  3. ASPIRIN [Concomitant]
  4. BLOOD PRESSURE MEDICATION [Concomitant]
  5. VITAMIN D SUPPLEMENT [Concomitant]
  6. CRESTOR [Suspect]
     Route: 048
  7. LEVOTHYROXINE SODIUM [Concomitant]
     Indication: THYROID DISORDER
  8. CUREL [Concomitant]
     Indication: PRURITUS

REACTIONS (6)
  - VITAMIN D DECREASED [None]
  - RHINORRHOEA [None]
  - HYPOTHYROIDISM [None]
  - BLOOD GLUCOSE INCREASED [None]
  - MEMORY IMPAIRMENT [None]
  - PRURITUS [None]
